FAERS Safety Report 5211274-1 (Version None)
Quarter: 2006Q4

REPORT INFORMATION
  Report Type: 
  Country: None (occurrence: None)
  Receive Date: 20061114
  Receipt Date: 20060928
  Transmission Date: 20070319
  Serious: No
  Sender: FDA-Public Use
  Company Number: S06-USA-03967-01

PATIENT
  Age: 71 Year
  Sex: Female

DRUGS (3)
  1. NAMENDA [Suspect]
     Indication: AMNESIA
     Dosage: 5 MG QD PO
     Route: 048
     Dates: start: 20060924
  2. ARICEPT [Concomitant]
  3. HEART MEDICATIONS (NOS) [Concomitant]

REACTIONS (1)
  - DIZZINESS [None]
